FAERS Safety Report 4849253-6 (Version None)
Quarter: 2005Q4

REPORT INFORMATION
  Report Type: 
  Country: None (occurrence: None)
  Receive Date: 20051209
  Receipt Date: 20051130
  Transmission Date: 20060501
  Serious: Yes (Death, Hospitalization)
  Sender: FDA-Public Use
  Company Number: US-JNJFOC-20051105003

PATIENT
  Age: 13 Month
  Sex: Female

DRUGS (6)
  1. ACETAMINOPHEN [Suspect]
  2. ACETAMINOPHEN [Suspect]
     Indication: DRUG USE FOR UNKNOWN INDICATION
  3. TRIAMINIC SRT [Suspect]
  4. TRIAMINIC SRT [Suspect]
  5. TRIAMINIC SRT [Suspect]
     Dosage: ^APPROPRIATE DOSAGE^
  6. TEMPRA [Suspect]

REACTIONS (2)
  - DRUG TOXICITY [None]
  - HEPATIC FAILURE [None]
